FAERS Safety Report 10027070 (Version 3)
Quarter: 2014Q2

REPORT INFORMATION
  Report Type: Report from Study
  Country: US (occurrence: US)
  Receive Date: 20140321
  Receipt Date: 20140416
  Transmission Date: 20141212
  Serious: Yes (Other)
  Sender: FDA-Public Use
  Company Number: US-PURDUE-USA-2014-0110348

PATIENT
  Age: 45 Year
  Sex: Female

DRUGS (4)
  1. OXY CR TAB [Suspect]
     Indication: INTERVERTEBRAL DISC DISPLACEMENT
     Dosage: UNK UNK, BID
     Route: 048
     Dates: start: 20131120
  2. OXY CR TAB [Suspect]
     Indication: INTERVERTEBRAL DISC DEGENERATION
     Dosage: 60 MG, Q12H
     Route: 048
     Dates: start: 20131218
  3. OXY CR TAB [Suspect]
     Indication: PAIN
     Dosage: 60 MG, Q12H
     Route: 048
     Dates: start: 20140212
  4. OXY CR TAB [Suspect]
     Dosage: UNK

REACTIONS (6)
  - Ovarian cancer [Recovered/Resolved]
  - Rash [Not Recovered/Not Resolved]
  - Libido decreased [Not Recovered/Not Resolved]
  - Amenorrhoea [Not Recovered/Not Resolved]
  - Headache [Unknown]
  - Astigmatism [Unknown]
